FAERS Safety Report 5500282-9 (Version None)
Quarter: 2007Q4

REPORT INFORMATION
  Report Type: 
  Country: None (occurrence: None)
  Receive Date: 20071029
  Receipt Date: 20071016
  Transmission Date: 20080405
  Serious: Yes (Death, Other)
  Sender: FDA-Public Use
  Company Number: US-RANBAXY-2007US-10784

PATIENT

DRUGS (3)
  1. ISOTRETINOIN [Suspect]
     Indication: NEUROBLASTOMA
     Dosage: 40 MG, BID
     Route: 048
  2. ISOTRETINOIN [Suspect]
     Dosage: 40 MG, BID
     Route: 048
     Dates: end: 20061001
  3. ISOTRETINOIN [Suspect]
     Dosage: 40 MG, BID
     Route: 048
     Dates: end: 20061001

REACTIONS (2)
  - NEOPLASM PROGRESSION [None]
  - OFF LABEL USE [None]
